FAERS Safety Report 5232796-3 (Version None)
Quarter: 2007Q1

REPORT INFORMATION
  Report Type: 
  Country: None (occurrence: None)
  Receive Date: 20070206
  Receipt Date: 20070206
  Transmission Date: 20070707
  Serious: Yes (Hospitalization)
  Sender: FDA-Public Use
  Company Number: None

PATIENT
  Age: 58 Year
  Sex: Female
  Weight: 74.1 kg

DRUGS (11)
  1. CARBOPLATIN [Suspect]
     Indication: BREAST CANCER METASTATIC
     Dosage: AUC- 2 IV BOLUS 3 OUT OF 4 WEEKS IV
     Route: 042
     Dates: start: 20060915, end: 20070119
  2. CETUXIMAB [Suspect]
     Indication: BREAST CANCER METASTATIC
     Dosage: 250 MG/M2 IV BOLUS WEEKLY IV
     Route: 042
     Dates: start: 20060721, end: 20070119
  3. PULMICORT [Concomitant]
  4. FORADIL [Concomitant]
  5. SPIRIVA [Concomitant]
  6. AMITRIPTYLINE HCL [Concomitant]
  7. VERAPAMIL EXTENDED-RELEASE [Concomitant]
  8. FLEXERIL [Concomitant]
  9. ATROVENT [Concomitant]
  10. IPRATROPIUM BROMIDE [Concomitant]
  11. COMPAZINE -PROCHLORPERAZINE MALEATE- [Concomitant]

REACTIONS (2)
  - CELLULITIS [None]
  - METHICILLIN-RESISTANT STAPHYLOCOCCAL AUREUS TEST POSITIVE [None]
